FAERS Safety Report 4513351-7 (Version None)
Quarter: 2004Q4

REPORT INFORMATION
  Report Type: 
  Country: None (occurrence: None)
  Receive Date: 20041130
  Receipt Date: 20040820
  Transmission Date: 20050328
  Serious: Yes (Other)
  Sender: FDA-Public Use
  Company Number: US-BRISTOL-MYERS SQUIBB COMPANY-12677837

PATIENT
  Age: 55 Year
  Sex: Female
  Weight: 71 kg

DRUGS (3)
  1. ERBITUX [Suspect]
     Indication: COLON CANCER
     Dosage: INFUSION STOPPED ON 10-JUN-04. PT RETURNED ON 11-JUN-04 FOR RECHALLENGE.
     Route: 042
     Dates: start: 20040610, end: 20040610
  2. BENADRYL [Concomitant]
     Indication: PREMEDICATION
     Route: 042
     Dates: start: 20040610, end: 20040610
  3. TAGAMET [Concomitant]
     Indication: PREMEDICATION
     Route: 042
     Dates: start: 20040610, end: 20040610

REACTIONS (2)
  - INFUSION RELATED REACTION [None]
  - MEDICATION ERROR [None]
